FAERS Safety Report 24798722 (Version 1)
Quarter: 2025Q1

REPORT INFORMATION
  Report Type: Other
  Country: CN (occurrence: CN)
  Receive Date: 20250102
  Receipt Date: 20250102
  Transmission Date: 20250409
  Serious: No
  Sender: TRIS PHARMA, INC.
  Company Number: CN-TRIS PHARMA, INC.-24CN011802

PATIENT

DRUGS (2)
  1. QUILLICHEW ER [Suspect]
     Active Substance: METHYLPHENIDATE HYDROCHLORIDE
     Indication: Attention deficit hyperactivity disorder
     Dosage: DOSE DECREASED, QD IN MORNING
     Route: 048
     Dates: start: 20241219
  2. QUILLICHEW ER [Suspect]
     Active Substance: METHYLPHENIDATE HYDROCHLORIDE
     Dosage: 20 MILLIGRAM, QD IN MORNING
     Route: 048
     Dates: start: 20241215, end: 20241217

REACTIONS (6)
  - Product dose omission issue [Unknown]
  - Anger [Recovering/Resolving]
  - Agitation [Recovering/Resolving]
  - Dizziness [Recovering/Resolving]
  - Nausea [Recovering/Resolving]
  - Vomiting [Recovering/Resolving]

NARRATIVE: CASE EVENT DATE: 20241201
